FAERS Safety Report 24193480 (Version 1)
Quarter: 2024Q3

REPORT INFORMATION
  Report Type: Spontaneous
  Country: US (occurrence: US)
  Receive Date: 20240809
  Receipt Date: 20240809
  Transmission Date: 20241016
  Serious: No
  Sender: ABBVIE
  Company Number: US-ABBVIE-5864491

PATIENT
  Age: 29 Year
  Sex: Female
  Weight: 74.842 kg

DRUGS (5)
  1. HUMIRA [Suspect]
     Active Substance: ADALIMUMAB
     Indication: Guttate psoriasis
     Dosage: FORM STRENGTH: 80 MG
     Route: 058
     Dates: start: 20240731
  2. HYDROCORTISONE [Concomitant]
     Active Substance: HYDROCORTISONE\HYDROCORTISONE ACETATE
     Indication: Guttate psoriasis
     Route: 061
  3. CALCIPOTRIENE [Concomitant]
     Active Substance: CALCIPOTRIENE
     Indication: Guttate psoriasis
     Route: 061
  4. TRIAMCINOLONE [Concomitant]
     Active Substance: TRIAMCINOLONE
     Indication: Guttate psoriasis
     Route: 061
  5. CLOBETASOL [Concomitant]
     Active Substance: CLOBETASOL
     Indication: Guttate psoriasis
     Route: 061

REACTIONS (3)
  - Injection site haemorrhage [Recovered/Resolved]
  - Off label use [Not Recovered/Not Resolved]
  - Incorrect dose administered [Not Recovered/Not Resolved]

NARRATIVE: CASE EVENT DATE: 20240731
